FAERS Safety Report 8193395-7 (Version None)
Quarter: 2012Q1

REPORT INFORMATION
  Report Type: 
  Country: None (occurrence: None)
  Receive Date: 20120308
  Receipt Date: 20120227
  Transmission Date: 20120608
  Serious: Yes (Hospitalization)
  Sender: FDA-Public Use
  Company Number: US-ELI_LILLY_AND_COMPANY-US201102001308

PATIENT
  Sex: Female

DRUGS (10)
  1. NORVASC [Concomitant]
     Dosage: 5 MG, QD
  2. FORTEO [Suspect]
     Indication: OSTEOPOROSIS
     Dosage: 20 UG, DAILY (1/D)
     Route: 065
  3. ACCUPRIL [Concomitant]
     Dosage: 40 MG, QD
  4. HYDROCHLOROTHIAZIDE [Concomitant]
     Dosage: 25 MG, QD
  5. CALCIUM [Concomitant]
     Dosage: UNK, QD
  6. MULTI-VITAMIN [Concomitant]
     Dosage: UNK, QD
  7. FISH OIL [Concomitant]
     Dosage: UNK, QD
  8. NIACIN [Concomitant]
     Dosage: UNK, QD
  9. PREVACID [Concomitant]
     Dosage: 30 MG, QD
  10. COLCHICINE [Concomitant]
     Dosage: 0.6 MG, QOD

REACTIONS (5)
  - BLOOD CALCIUM INCREASED [None]
  - SPEECH DISORDER [None]
  - DEEP VEIN THROMBOSIS [None]
  - LARYNGITIS [None]
  - NASOPHARYNGITIS [None]
